FAERS Safety Report 23852107 (Version 2)
Quarter: 2024Q2

REPORT INFORMATION
  Report Type: Report from Study
  Country: US (occurrence: US)
  Receive Date: 20240514
  Receipt Date: 20240626
  Transmission Date: 20240715
  Serious: Yes (Other)
  Sender: FDA-Public Use
  Company Number: US-TAKEDA-2022TUS002200

PATIENT
  Sex: Male
  Weight: 73 kg

DRUGS (1)
  1. VEDOLIZUMAB [Suspect]
     Active Substance: VEDOLIZUMAB
     Indication: Crohn^s disease
     Dosage: 300 MILLIGRAM
     Route: 042
     Dates: start: 20190215

REACTIONS (4)
  - Prostatic operation [Unknown]
  - Product distribution issue [Unknown]
  - Product temperature excursion issue [Unknown]
  - No adverse event [Unknown]
